FAERS Safety Report 9550833 (Version 3)
Quarter: 2016Q2

REPORT INFORMATION
  Report Type: Report from Study
  Country: US (occurrence: US)
  Receive Date: 20130924
  Receipt Date: 20160418
  Transmission Date: 20160815
  Serious: Yes (Other)
  Sender: FDA-Public Use
  Company Number: US-SANOFI-AVENTIS-2013SA039301

PATIENT
  Age: 63 Year
  Sex: Female

DRUGS (26)
  1. SYNTHROID [Concomitant]
     Active Substance: LEVOTHYROXINE SODIUM
  2. BACLOFEN. [Concomitant]
     Active Substance: BACLOFEN
  3. PARACETAMOL/CODEINE PHOSPHATE [Concomitant]
  4. AUBAGIO [Suspect]
     Active Substance: TERIFLUNOMIDE
     Indication: MULTIPLE SCLEROSIS
     Route: 048
     Dates: start: 20130111, end: 20140116
  5. NEXIUM [Concomitant]
     Active Substance: ESOMEPRAZOLE MAGNESIUM
  6. AZITHROMYCIN ANHYDROUS. [Concomitant]
     Active Substance: AZITHROMYCIN ANHYDROUS
  7. CORTISONE [Concomitant]
     Active Substance: CORTISONE\HYDROCORTISONE
  8. ONDASETRON [Concomitant]
     Active Substance: ONDANSETRON
  9. OXYCODONE/PARACETAMOL [Concomitant]
  10. LIDOCAINE. [Concomitant]
     Active Substance: LIDOCAINE
  11. CICLOPIROX. [Concomitant]
     Active Substance: CICLOPIROX
  12. DEXILANT [Concomitant]
     Active Substance: DEXLANSOPRAZOLE
  13. AUBAGIO [Suspect]
     Active Substance: TERIFLUNOMIDE
     Indication: MULTIPLE SCLEROSIS
     Route: 048
  14. LISINOPRIL. [Concomitant]
     Active Substance: LISINOPRIL
  15. MORPHINE [Concomitant]
     Active Substance: MORPHINE
  16. TIZANIDINE. [Concomitant]
     Active Substance: TIZANIDINE
  17. CIPROFLOXACIN. [Concomitant]
     Active Substance: CIPROFLOXACIN
  18. RELPAX [Concomitant]
     Active Substance: ELETRIPTAN HYDROBROMIDE
  19. COLCHICINE. [Concomitant]
     Active Substance: COLCHICINE
  20. FORTEO [Concomitant]
     Active Substance: TERIPARATIDE
  21. MYRBETRIQ [Concomitant]
     Active Substance: MIRABEGRON
  22. CELEBREX [Concomitant]
     Active Substance: CELECOXIB
  23. FAMCICLOVIR. [Concomitant]
     Active Substance: FAMCICLOVIR
  24. DULCOLAX NOS [Concomitant]
     Active Substance: BISACODYL OR DOCUSATE SODIUM
  25. METHYLPRED [Concomitant]
     Active Substance: METHYLPREDNISOLONE
  26. ZALEPLON. [Concomitant]
     Active Substance: ZALEPLON

REACTIONS (7)
  - Ulna fracture [Unknown]
  - Radius fracture [Unknown]
  - Muscle strain [Not Recovered/Not Resolved]
  - Arthralgia [Unknown]
  - Drug ineffective [Unknown]
  - Fall [Unknown]
  - Drug dose omission [Unknown]

NARRATIVE: CASE EVENT DATE: 20130416
